APPROVED DRUG PRODUCT: ALBUTEROL SULFATE
Active Ingredient: ALBUTEROL SULFATE
Strength: EQ 0.5% BASE
Dosage Form/Route: SOLUTION;INHALATION
Application: A075664 | Product #001 | TE Code: AN
Applicant: NEPHRON CORP
Approved: Jun 26, 2001 | RLD: No | RS: Yes | Type: RX